FAERS Safety Report 5568224-8 (Version None)
Quarter: 2007Q4

REPORT INFORMATION
  Report Type: 
  Country: None (occurrence: None)
  Receive Date: 20071220
  Receipt Date: 20071213
  Transmission Date: 20080405
  Serious: Yes (Death)
  Sender: FDA-Public Use
  Company Number: US-BRISTOL-MYERS SQUIBB COMPANY-14014773

PATIENT
  Age: 43 Year
  Sex: Female

DRUGS (2)
  1. IXEMPRA [Suspect]
     Indication: BREAST CANCER METASTATIC
     Dates: start: 20071112, end: 20071112
  2. HERCEPTIN [Suspect]
     Dates: start: 20071112

REACTIONS (3)
  - LYMPHANGIOSIS CARCINOMATOSA [None]
  - MALIGNANT NEOPLASM PROGRESSION [None]
  - RESPIRATORY FAILURE [None]
